FAERS Safety Report 5091552-X (Version None)
Quarter: 2006Q3

REPORT INFORMATION
  Report Type: 
  Country: None (occurrence: None)
  Receive Date: 20060824
  Receipt Date: 20060817
  Transmission Date: 20061208
  Serious: Yes (Death, Other)
  Sender: FDA-Public Use
  Company Number: 163-20785-06080860

PATIENT
  Sex: 0

DRUGS (6)
  1. THALOMID [Suspect]
     Indication: MULTIPLE MYELOMA
     Dosage: VARIABLE, ORAL
     Route: 048
  2. DOXORUBICIN HCL [Concomitant]
  3. DEXAMETHASONE TAB [Concomitant]
  4. MELPHALAN [Concomitant]
  5. PREDNISONE TAB [Concomitant]
  6. BORTEZOMIB (BORTEZOMIB) [Concomitant]

REACTIONS (15)
  - ANAEMIA [None]
  - CANDIDIASIS [None]
  - CONSTIPATION [None]
  - DEEP VEIN THROMBOSIS [None]
  - FEBRILE NEUTROPENIA [None]
  - HERPES ZOSTER [None]
  - INFECTION [None]
  - MYOCARDIAL ISCHAEMIA [None]
  - NEUROPATHY PERIPHERAL [None]
  - NEUTROPENIA [None]
  - PERIPHERAL SENSORY NEUROPATHY [None]
  - PULMONARY EMBOLISM [None]
  - RASH [None]
  - SOMNOLENCE [None]
  - THROMBOCYTOPENIA [None]
